FAERS Safety Report 19235594 (Version 2)
Quarter: 2021Q2

REPORT INFORMATION
  Report Type: Report from Study
  Country: FR (occurrence: FR)
  Receive Date: 20210510
  Receipt Date: 20210521
  Transmission Date: 20210717
  Serious: Yes (Hospitalization)
  Sender: FDA-Public Use
  Company Number: FR-AMGEN-FRACT2021068319

PATIENT
  Age: 44 Year
  Sex: Male
  Weight: 44 kg

DRUGS (14)
  1. PANITUMUMAB [Suspect]
     Active Substance: PANITUMUMAB
     Indication: COLORECTAL CANCER
     Dosage: UNK
     Route: 042
     Dates: start: 20210316
  2. PEGFILGRASTIM [Concomitant]
     Active Substance: PEGFILGRASTIM
     Indication: PROPHYLAXIS
     Dosage: 6 MILLIGRAM (AT D3), UNK
     Route: 048
     Dates: start: 20210315
  3. PANITUMUMAB [Suspect]
     Active Substance: PANITUMUMAB
     Dosage: 275 MILLIGRAM
     Route: 042
  4. 5 FU [Suspect]
     Active Substance: FLUOROURACIL
     Dosage: UNK
     Route: 042
     Dates: start: 20210316
  5. 5 FU [Suspect]
     Active Substance: FLUOROURACIL
     Dosage: 616 MILLIGRAM
     Route: 040
  6. EMEND [Concomitant]
     Active Substance: APREPITANT
     Indication: PROPHYLAXIS OF NAUSEA AND VOMITING
     Dosage: 125/80 MILLIGRAM
     Route: 048
     Dates: start: 20210315
  7. SOLUPRED [METHYLPREDNISOLONE] [Concomitant]
     Active Substance: METHYLPREDNISOLONE
     Indication: PROPHYLAXIS OF NAUSEA AND VOMITING
     Dosage: (60MG D2 TO 84), UNK
     Route: 048
     Dates: start: 20210315
  8. IRINOTECAN [Suspect]
     Active Substance: IRINOTECAN
     Indication: COLORECTAL CANCER
     Dosage: UNK
     Route: 042
     Dates: start: 20210316
  9. LEUCOVORIN [FOLINIC ACID] [Suspect]
     Active Substance: LEUCOVORIN
     Indication: COLORECTAL CANCER
     Dosage: UNK
     Route: 042
     Dates: start: 20210316
  10. IRINOTECAN [Suspect]
     Active Substance: IRINOTECAN
     Dosage: 231 MILLIGRAM
     Route: 042
  11. 5 FU [Suspect]
     Active Substance: FLUOROURACIL
     Dosage: 3696 MILLIGRAM
     Route: 042
  12. PRIMPERAN [Concomitant]
     Active Substance: METOCLOPRAMIDE HYDROCHLORIDE
     Indication: PROPHYLAXIS OF NAUSEA AND VOMITING
     Dosage: 10 MILLIGRAM, TID
     Route: 048
     Dates: start: 20210315
  13. LEUCOVORIN [FOLINIC ACID] [Suspect]
     Active Substance: LEUCOVORIN
     Dosage: 616 MILLIGRAM
     Route: 042
  14. 5 FU [Suspect]
     Active Substance: FLUOROURACIL
     Indication: COLORECTAL CANCER
     Dosage: UNK
     Route: 040
     Dates: start: 20210316

REACTIONS (1)
  - Subileus [Recovered/Resolved]

NARRATIVE: CASE EVENT DATE: 20210420
